FAERS Safety Report 19434633 (Version 3)
Quarter: 2021Q3

REPORT INFORMATION
  Report Type: Spontaneous
  Country: JP (occurrence: JP)
  Receive Date: 20210617
  Receipt Date: 20210903
  Transmission Date: 20211014
  Serious: Yes (Death, Other)
  Sender: FDA-Public Use
  Company Number: JP-TAKEDA-2021TJP039948

PATIENT
  Age: 50 Year
  Sex: Female
  Weight: 39.8 kg

DRUGS (3)
  1. ENTYVIO [Suspect]
     Active Substance: VEDOLIZUMAB
     Indication: COLITIS ULCERATIVE
     Dosage: 300 MILLIGRAM
     Route: 042
     Dates: start: 20191227
  2. PENTASA [Concomitant]
     Active Substance: MESALAMINE
     Indication: COLITIS ULCERATIVE
     Dosage: 1000 MILLIGRAM, QD
     Route: 054
     Dates: start: 20170210, end: 20210427
  3. PENTASA [Concomitant]
     Active Substance: MESALAMINE
     Indication: COLITIS ULCERATIVE
     Dosage: 1500 MILLIGRAM, TID
     Route: 048
     Dates: start: 20170210, end: 20210427

REACTIONS (2)
  - Breast cancer recurrent [Fatal]
  - Disease progression [Fatal]

NARRATIVE: CASE EVENT DATE: 20200804
